FAERS Safety Report 7700015-1 (Version None)
Quarter: 2011Q3

REPORT INFORMATION
  Report Type: 
  Country: None (occurrence: None)
  Receive Date: 20110822
  Receipt Date: 20110808
  Transmission Date: 20111222
  Serious: Yes (Death, Other)
  Sender: FDA-Public Use
  Company Number: JP-CELGENEUS-087-50794-11071047

PATIENT
  Sex: Male

DRUGS (31)
  1. VIDAZA [Suspect]
     Dosage: 75 MILLIGRAM/SQ. METER
     Route: 058
     Dates: start: 20110420, end: 20110428
  2. NEUPOGEN [Concomitant]
     Route: 065
  3. VOLTAREN [Concomitant]
     Dosage: 1000 MILLIGRAM
     Route: 054
     Dates: start: 20110406, end: 20110621
  4. AMLODIN OD [Concomitant]
     Dosage: 5 MILLIGRAM
     Route: 048
     Dates: start: 20110407, end: 20110629
  5. AMPHOTERICIN B [Concomitant]
     Route: 065
  6. CANDESARTAN CILEXETIL [Concomitant]
     Dosage: 8 MILLIGRAM
     Route: 048
     Dates: end: 20110629
  7. COMELIAN [Concomitant]
     Dosage: 100 MILLIGRAM
     Route: 048
     Dates: start: 20110407, end: 20110629
  8. GRANISETRON [Concomitant]
     Dosage: 3 MILLIGRAM
     Route: 048
     Dates: start: 20110420, end: 20110428
  9. AMSULMYLAN [Concomitant]
     Route: 041
     Dates: start: 20110628, end: 20110701
  10. VIDAZA [Suspect]
     Dosage: 75 MILLIGRAM/SQ. METER
     Route: 058
     Dates: start: 20110519, end: 20110527
  11. VIDAZA [Suspect]
     Dosage: 75 MILLIGRAM/SQ. METER
     Route: 041
     Dates: start: 20110621, end: 20110624
  12. LANSOPRAZOLE [Concomitant]
     Dosage: 15 MILLIGRAM
     Route: 048
     Dates: end: 20110629
  13. DOXAZOSIN MESYLATE [Concomitant]
     Dosage: 2 MILLIGRAM
     Route: 048
     Dates: end: 20110629
  14. TELEMINSOFT [Concomitant]
     Dosage: 10 MILLIGRAM
     Route: 054
     Dates: start: 20110423, end: 20110610
  15. MAXIPIME [Concomitant]
     Dosage: 2 GRAM
     Route: 041
     Dates: start: 20110507, end: 20110520
  16. FLUMARIN [Concomitant]
     Dosage: 2 GRAM
     Route: 041
     Dates: start: 20110507, end: 20110520
  17. MEROPENEM [Concomitant]
     Dosage: .5 GRAM
     Route: 041
     Dates: start: 20110701, end: 20110714
  18. DEXAMETHASONE SODIUM PHOSPHATE [Concomitant]
     Dosage: 3.3 MILLIGRAM
     Route: 041
     Dates: start: 20110621, end: 20110621
  19. SENNOSIDE [Concomitant]
     Dosage: 24 MILLIGRAM
     Route: 048
     Dates: start: 20110423, end: 20110629
  20. LEVOFLOXACIN [Concomitant]
     Dosage: 500 MILLIGRAM
     Route: 048
     Dates: start: 20110626, end: 20110709
  21. MICAFUNGIN SODIUM [Concomitant]
     Route: 065
  22. MUCODYNE [Concomitant]
     Dosage: 1000 MILLIGRAM
     Route: 065
     Dates: start: 20110407, end: 20110629
  23. PACETCOOL [Concomitant]
     Dosage: 2 GRAM
     Route: 041
     Dates: start: 20110501, end: 20110506
  24. GRAN [Concomitant]
     Dosage: 150 MICROGRAM
     Route: 041
     Dates: start: 20110528, end: 20110615
  25. MEROPENEM HYDRATE [Concomitant]
     Route: 065
  26. ASPIRIN [Concomitant]
     Dosage: 100 MILLIGRAM
     Route: 048
     Dates: end: 20110629
  27. TRICHLORMETHIAZIDE [Concomitant]
     Dosage: 2 MILLIGRAM
     Route: 048
     Dates: start: 20110407, end: 20110629
  28. MASHI-NIN-GAN [Concomitant]
     Dosage: 6 GRAM
     Route: 048
     Dates: start: 20110407, end: 20110629
  29. MAXIPIME [Concomitant]
     Dosage: 2 GRAM
     Route: 041
     Dates: start: 20110626, end: 20110628
  30. MEROPENEM [Concomitant]
     Dosage: 1 GRAM
     Route: 041
     Dates: start: 20110607, end: 20110617
  31. CEFOTIAM HYDROCHLORIDE [Concomitant]
     Route: 065

REACTIONS (2)
  - RENAL FAILURE ACUTE [None]
  - SEPSIS [None]
